FAERS Safety Report 25921865 (Version 5)
Quarter: 2025Q4

REPORT INFORMATION
  Report Type: Report from Study
  Country: EU (occurrence: EU)
  Receive Date: 20251015
  Receipt Date: 20251203
  Transmission Date: 20260118
  Serious: Yes (Death, Hospitalization)
  Sender: ABBVIE
  Company Number: EU-ABBVIE-6497730

PATIENT
  Age: 78 Year
  Sex: Male
  Weight: 70 kg

DRUGS (10)
  1. FOSCARBIDOPA\FOSLEVODOPA [Suspect]
     Active Substance: FOSCARBIDOPA\FOSLEVODOPA
     Indication: Parkinson^s disease
     Dosage: DURATION OF DAILY INFUSION: 12 HOURS,?CHARGING DOSE WHEN WAKE UP: 0.6 ML,?FLOW RATE 0.4 ML/H,?DAI...
     Route: 058
     Dates: start: 20250812, end: 20250915
  2. FOSCARBIDOPA\FOSLEVODOPA [Suspect]
     Active Substance: FOSCARBIDOPA\FOSLEVODOPA
     Dosage: DURATION OF DAILY INFUSION: 12 HOURS,?CHARGING DOSE WHEN WAKE UP: 0.6 ML,?FLOW RATE 0.34 ML/H,?DA...
     Route: 058
     Dates: start: 20250915, end: 20250916
  3. FOSCARBIDOPA\FOSLEVODOPA [Suspect]
     Active Substance: FOSCARBIDOPA\FOSLEVODOPA
     Dosage: DURATION OF DAILY INFUSION: 12 HOURS.?CHARGING DOSE WHEN WAKE UP: 0.6 ML.?FLOW RATE 0.32 ML/H.?DA...
     Route: 058
     Dates: start: 20250916, end: 20251013
  4. FOSCARBIDOPA\FOSLEVODOPA [Suspect]
     Active Substance: FOSCARBIDOPA\FOSLEVODOPA
     Dosage: DURATION OF DAILY INFUSION 12 HRS?LOADING DOSE UPON AWAKENING SPECIFY FLD/FCD DOSE 0.6ML?SPECIFY ...
     Route: 058
     Dates: start: 20251013, end: 20251021
  5. FOSCARBIDOPA\FOSLEVODOPA [Suspect]
     Active Substance: FOSCARBIDOPA\FOSLEVODOPA
     Dosage: DURATION OF DAILY INFUSION 12 HRS?LOADING DOSE UPON AWAKENING SPECIFY FLD/FCD DOSE 0.6ML?SPECIFY ...
     Route: 058
     Dates: start: 20251021, end: 20251027
  6. LEVOTHYROXINE [Concomitant]
     Active Substance: LEVOTHYROXINE
     Indication: Product used for unknown indication
  7. POTASSIUM CHLORIDE [Concomitant]
     Active Substance: POTASSIUM CHLORIDE
     Indication: Product used for unknown indication
     Dates: end: 20251022
  8. AMANTADINE HYDROCHLORIDE [Concomitant]
     Active Substance: AMANTADINE HYDROCHLORIDE
     Indication: Parkinson^s disease
     Dates: start: 20250910
  9. CARBIDOPA AND LEVODOPA [Concomitant]
     Active Substance: CARBIDOPA\LEVODOPA
     Indication: Product used for unknown indication
     Dates: start: 20201021, end: 20251025
  10. CLOZAPINE [Concomitant]
     Active Substance: CLOZAPINE
     Indication: Product used for unknown indication
     Dates: start: 20251013, end: 20251025

REACTIONS (2)
  - Motor dysfunction [Fatal]
  - Orthostatic hypotension [Fatal]

NARRATIVE: CASE EVENT DATE: 20250922
